FAERS Safety Report 8539639-0 (Version None)
Quarter: 2012Q3

REPORT INFORMATION
  Report Type: 
  Country: None (occurrence: None)
  Receive Date: 20120726
  Receipt Date: 20120725
  Transmission Date: 20120928
  Serious: Yes (Death, Hospitalization)
  Sender: FDA-Public Use
  Company Number: PHFR2012GB004133

PATIENT
  Sex: Male

DRUGS (1)
  1. CLOZARIL [Suspect]
     Indication: SCHIZOPHRENIA
     Dates: start: 20010701

REACTIONS (4)
  - OBESITY [None]
  - PNEUMONIA ASPIRATION [None]
  - CEREBROVASCULAR ACCIDENT [None]
  - DEATH [None]
